FAERS Safety Report 15148163 (Version 2)
Quarter: 2024Q3

REPORT INFORMATION
  Report Type: Report from Study
  Country: ES (occurrence: ES)
  Receive Date: 20180716
  Receipt Date: 20240704
  Transmission Date: 20241017
  Serious: Yes (Death, Hospitalization)
  Sender: PURDUE
  Company Number: ES-KYOWA KIRIN-2018BKK000661

PATIENT
  Age: 59 Year
  Sex: Female

DRUGS (29)
  1. OXYCODONE HYDROCHLORIDE [Suspect]
     Active Substance: OXYCODONE HYDROCHLORIDE
     Indication: Analgesic therapy
     Dosage: 40 MILLIGRAM, Q12H (40 MG, Q12H (40 MILLIGRAM, EVERY 12 HRS))
     Route: 065
  2. NALOXONE HYDROCHLORIDE\OXYCODONE HYDROCHLORIDE [Suspect]
     Active Substance: NALOXONE HYDROCHLORIDE\OXYCODONE HYDROCHLORIDE
     Indication: Analgesic therapy
     Dosage: 1 DOSAGE FORM, Q12H (1 DF, Q12H (STRENGHT 40/20)) (1 DOSAGE FORM, EVERY 12 HRS)
     Route: 065
  3. TAPENTADOL [Suspect]
     Active Substance: TAPENTADOL
     Indication: Analgesic therapy
     Dosage: 25 MG, DAILY (LUNCH TIME) / 25 MILLIGRAM, 1/DAY
     Route: 065
  4. TAPENTADOL [Suspect]
     Active Substance: TAPENTADOL
     Dosage: UNK
     Route: 065
  5. FENTANYL [Suspect]
     Active Substance: FENTANYL\FENTANYL CITRATE
     Indication: Breakthrough pain
     Dosage: 2 TABLET, DAILY
     Route: 060
  6. FENTANYL [Suspect]
     Active Substance: FENTANYL\FENTANYL CITRATE
     Dosage: 100 MCG, PRN (100 MICROGRAM, AS NEEDED)
     Route: 060
  7. FENTANYL [Suspect]
     Active Substance: FENTANYL\FENTANYL CITRATE
     Dosage: 200 MCG, UNK
     Route: 060
  8. FENTANYL [Suspect]
     Active Substance: FENTANYL\FENTANYL CITRATE
     Dosage: 400 MCG, UNK
     Route: 060
  9. FENTANYL [Suspect]
     Active Substance: FENTANYL\FENTANYL CITRATE
     Dosage: 300 MCG, UNK
     Route: 060
  10. FENTANYL [Suspect]
     Active Substance: FENTANYL\FENTANYL CITRATE
     Dosage: 6 TABLET, NOCTE
     Route: 060
  11. FENTANYL [Suspect]
     Active Substance: FENTANYL\FENTANYL CITRATE
     Dosage: 300 MCG (300 MICROGRAM, AS NEEDED)
     Route: 060
  12. FENTANYL [Suspect]
     Active Substance: FENTANYL\FENTANYL CITRATE
     Dosage: 2 DOSAGE FORM, DAILY (2 DOSAGE FORM, 1/DAY)
     Route: 060
  13. FENTANYL [Suspect]
     Active Substance: FENTANYL\FENTANYL CITRATE
     Dosage: 6 DOSAGE FORM
     Route: 060
  14. FENTANYL [Suspect]
     Active Substance: FENTANYL\FENTANYL CITRATE
     Dosage: 200 MCG (200 MICROGRAM, AS NEEDED)`
     Route: 060
  15. FENTANYL [Suspect]
     Active Substance: FENTANYL\FENTANYL CITRATE
     Dosage: 400 MCG (400 MICROGRAM, AS NEEDED )
     Route: 060
  16. FENTANYL [Suspect]
     Active Substance: FENTANYL\FENTANYL CITRATE
     Indication: Pain
     Dosage: 100 MCG, DAILY (100 MICROGRAM, 1/DAY)
     Route: 062
  17. FENTANYL [Suspect]
     Active Substance: FENTANYL\FENTANYL CITRATE
     Dosage: 150 MCG, DAILY (150 MICROGRAM, 1/DAY)
     Route: 062
  18. FENTANYL [Suspect]
     Active Substance: FENTANYL\FENTANYL CITRATE
     Dosage: 50 MCG, Q72H
     Route: 062
  19. FENTANYL [Suspect]
     Active Substance: FENTANYL\FENTANYL CITRATE
     Dosage: 50 MICROGRAM
     Route: 062
  20. PREGABALIN [Suspect]
     Active Substance: PREGABALIN
     Indication: Analgesic therapy
     Dosage: 75 MILLIGRAM, Q8H (75 MG, Q8H (75 MILLIGRAM, EVERY 8 HRS))
     Route: 065
  21. PREGABALIN [Suspect]
     Active Substance: PREGABALIN
     Dosage: 25 MG, PM
     Route: 065
  22. PREGABALIN [Suspect]
     Active Substance: PREGABALIN
     Dosage: 25 MILLIGRAM, DAILY (25 MILLIGRAM, 1/DAY)
     Route: 065
  23. LIDOCAINE [Suspect]
     Active Substance: LIDOCAINE
     Indication: Analgesic therapy
     Dosage: 1 DOSAGE FORM, Q12H (1 DF, Q12H 1 DOSAGE FORM, EVERY 12 HRS)
     Route: 061
  24. LIDOCAINE [Suspect]
     Active Substance: LIDOCAINE
     Dosage: 1  DF, Q6H (1 DOSAGE FORM, EVERY 6 HRS)
     Route: 061
  25. AMITRIPTYLINE HYDROCHLORIDE [Suspect]
     Active Substance: AMITRIPTYLINE HYDROCHLORIDE
     Indication: Analgesic therapy
     Dosage: 10 MG, PM
     Route: 065
  26. AMITRIPTYLINE HYDROCHLORIDE [Suspect]
     Active Substance: AMITRIPTYLINE HYDROCHLORIDE
     Dosage: 10 MILLIGRAM, DAILY (10 MILLIGRAM, 1/DAY)
     Route: 065
  27. ERLOTINIB [Concomitant]
     Active Substance: ERLOTINIB
     Indication: EGFR gene mutation
     Dosage: 150 MG, DAILY
     Route: 065
  28. DEXAMETHASONE [Concomitant]
     Active Substance: DEXAMETHASONE
     Indication: Pain
     Dosage: 4 MILLIGRAM, Q12H (4 MG, Q12H (4 MILLIGRAM, EVERY 12 HRS))
     Route: 065
  29. ZOMETA [Concomitant]
     Active Substance: ZOLEDRONIC ACID
     Indication: EGFR gene mutation
     Dosage: 4 MG, MONTHLY (4 MILLIGRAM, 1/MONTH)
     Route: 065

REACTIONS (8)
  - Disease progression [Fatal]
  - Decreased appetite [Recovered/Resolved]
  - Insomnia [Recovered/Resolved]
  - Nausea [Recovered/Resolved]
  - Malaise [Recovered/Resolved]
  - Night sweats [Recovered/Resolved]
  - Rash [Unknown]
  - Inappropriate schedule of product administration [Unknown]
